FAERS Safety Report 7702669-2 (Version None)
Quarter: 2011Q3

REPORT INFORMATION
  Report Type: 
  Country: None (occurrence: None)
  Receive Date: 20110817
  Receipt Date: 20110803
  Transmission Date: 20111222
  Serious: Yes (Hospitalization)
  Sender: FDA-Public Use
  Company Number: DSA_46852_2011

PATIENT
  Sex: Male

DRUGS (2)
  1. BUPROPION HYDROCHLORIDE [Suspect]
     Indication: DEPRESSION
     Dosage: (1 TABLET (UNKNOWN DOSING) ORAL)
     Route: 048
     Dates: start: 20100901, end: 20100101
  2. BUPROPION HYDROCHLORIDE [Suspect]
     Indication: ANXIETY
     Dosage: (1 TABLET (UNKNOWN DOSING) ORAL)
     Route: 048
     Dates: start: 20100901, end: 20100101

REACTIONS (6)
  - DEPRESSION [None]
  - EDUCATIONAL PROBLEM [None]
  - SUICIDAL IDEATION [None]
  - DRUG INEFFECTIVE [None]
  - PRODUCT SUBSTITUTION ISSUE [None]
  - DISEASE RECURRENCE [None]
